FAERS Safety Report 13501533 (Version 2)
Quarter: 2017Q3

REPORT INFORMATION
  Report Type: Spontaneous
  Country: US (occurrence: US)
  Receive Date: 20170501
  Receipt Date: 20170919
  Transmission Date: 20171127
  Serious: Yes (Hospitalization, Other)
  Sender: FDA-Public Use
  Company Number: US-BEH-2017079862

PATIENT
  Age: 68 Year
  Sex: Male
  Weight: 74.38 kg

DRUGS (28)
  1. DIPHENHYDRAMINE. [Concomitant]
     Active Substance: DIPHENHYDRAMINE
  2. XARELTO [Concomitant]
     Active Substance: RIVAROXABAN
  3. HIZENTRA [Suspect]
     Active Substance: HUMAN IMMUNOGLOBULIN G
     Dosage: UNK
     Route: 058
  4. ISOSORBIDE DN [Concomitant]
  5. ZITHROMAX [Concomitant]
     Active Substance: AZITHROMYCIN DIHYDRATE
  6. SINGULAIR [Concomitant]
     Active Substance: MONTELUKAST SODIUM
  7. FLONASE [Concomitant]
     Active Substance: FLUTICASONE PROPIONATE
  8. LOSARTAN. [Concomitant]
     Active Substance: LOSARTAN
  9. LMX                                /00033401/ [Concomitant]
  10. ALLOPURINOL. [Concomitant]
     Active Substance: ALLOPURINOL
  11. MYRBETRIQ [Concomitant]
     Active Substance: MIRABEGRON
  12. ISOSORBIDE. [Concomitant]
     Active Substance: ISOSORBIDE
  13. HIZENTRA [Suspect]
     Active Substance: HUMAN IMMUNOGLOBULIN G
     Dosage: UNK
     Route: 058
  14. HYDRALAZINE [Concomitant]
     Active Substance: HYDRALAZINE HYDROCHLORIDE
  15. LETROZOLE. [Concomitant]
     Active Substance: LETROZOLE
  16. GABAPENTIN. [Concomitant]
     Active Substance: GABAPENTIN
  17. ADVAIR HFA [Concomitant]
     Active Substance: FLUTICASONE PROPIONATE\SALMETEROL XINAFOATE
  18. METOPROLOL SUCCINATE. [Concomitant]
     Active Substance: METOPROLOL SUCCINATE
  19. HIZENTRA [Suspect]
     Active Substance: HUMAN IMMUNOGLOBULIN G
     Dosage: UNK
     Route: 058
  20. TRAMADOL. [Concomitant]
     Active Substance: TRAMADOL
  21. METOPROLOL. [Concomitant]
     Active Substance: METOPROLOL
  22. HIZENTRA [Suspect]
     Active Substance: HUMAN IMMUNOGLOBULIN G
     Indication: IMMUNODEFICIENCY
     Dosage: 10 G, QW
     Route: 058
     Dates: start: 20131030
  23. FUROSEMIDE. [Concomitant]
     Active Substance: FUROSEMIDE
  24. DIGOXIN. [Concomitant]
     Active Substance: DIGOXIN
  25. EPIPEN [Concomitant]
     Active Substance: EPINEPHRINE
  26. NEXIUM [Concomitant]
     Active Substance: ESOMEPRAZOLE MAGNESIUM
  27. HIZENTRA [Suspect]
     Active Substance: HUMAN IMMUNOGLOBULIN G
     Dosage: UNK
     Route: 058
  28. AZELASTINE [Concomitant]
     Active Substance: AZELASTINE

REACTIONS (3)
  - Cardiac failure congestive [Unknown]
  - Cardiac failure congestive [Unknown]
  - Cardiac failure congestive [Recovered/Resolved]

NARRATIVE: CASE EVENT DATE: 20170407
